FAERS Safety Report 4530806-X (Version None)
Quarter: 2004Q4

REPORT INFORMATION
  Report Type: 
  Country: None (occurrence: None)
  Receive Date: 20041216
  Receipt Date: 20041129
  Transmission Date: 20050328
  Serious: Yes (Hospitalization)
  Sender: FDA-Public Use
  Company Number: EWC041241617

PATIENT
  Age: 65 Year
  Sex: Female
  Weight: 64 kg

DRUGS (3)
  1. FORTEO [Suspect]
     Indication: OSTEOPOROSIS
     Dosage: 20 UG/1 DAY
     Dates: start: 20040329, end: 20041022
  2. NAECAL (CALCIUM CARBONATE) [Concomitant]
  3. LOSARTAN [Concomitant]

REACTIONS (1)
  - PANCREATITIS [None]
